FAERS Safety Report 17054032 (Version 1)
Quarter: 2019Q4

REPORT INFORMATION
  Report Type: Spontaneous
  Country: US (occurrence: US)
  Receive Date: 20191120
  Receipt Date: 20191120
  Transmission Date: 20200122
  Serious: Yes (Disabling)
  Sender: FDA-Public Use
  Company Number: None

PATIENT
  Age: 56 Year
  Sex: Female
  Weight: 82.35 kg

DRUGS (1)
  1. CARBIDOPA/LEVODOPA 25-100 TABS DISP FOR SINEMET 25-100 TABS [Suspect]
     Active Substance: CARBIDOPA\LEVODOPA
     Indication: RESTLESS LEGS SYNDROME
     Dosage: ?          QUANTITY:180 TABLET(S);?
     Route: 048
     Dates: start: 20191013

REACTIONS (8)
  - Fatigue [None]
  - Headache [None]
  - Myalgia [None]
  - Dizziness [None]
  - Dyskinesia [None]
  - Depression [None]
  - Suicidal ideation [None]
  - Product substitution issue [None]

NARRATIVE: CASE EVENT DATE: 20191013
